FAERS Safety Report 9528760 (Version 2)
Quarter: 2013Q3

REPORT INFORMATION
  Report Type: Spontaneous
  Country: US (occurrence: US)
  Receive Date: 20130917
  Receipt Date: 20130917
  Transmission Date: 20140515
  Serious: No
  Sender: FDA-Public Use
  Company Number: US-BANPHARM-20131303

PATIENT
  Age: 70 Year
  Sex: Male
  Weight: 113.4 kg

DRUGS (1)
  1. ZYRTEC LIQUID GELS 10 MG [Suspect]
     Indication: HYPERSENSITIVITY
     Dosage: 1 DF, ONCE,
     Route: 048
     Dates: start: 20130502, end: 20130502

REACTIONS (4)
  - Middle insomnia [Recovering/Resolving]
  - Dehydration [Recovering/Resolving]
  - Dysphagia [Recovering/Resolving]
  - Asthenopia [Recovering/Resolving]
